FAERS Safety Report 4315355-6 (Version None)
Quarter: 2004Q1

REPORT INFORMATION
  Report Type: 
  Country: None (occurrence: None)
  Receive Date: 20040311
  Receipt Date: 20040301
  Transmission Date: 20041129
  Serious: Yes (Death, Hospitalization)
  Sender: FDA-Public Use
  Company Number: CH-BRISTOL-MYERS SQUIBB COMPANY-12520359

PATIENT
  Age: 65 Year
  Sex: Male

DRUGS (3)
  1. CISPLATIN [Suspect]
     Indication: SMALL CELL LUNG CANCER STAGE UNSPECIFIED
     Dosage: ON DAY 15 OF CYCLE
  2. ETOPOSIDE [Suspect]
     Indication: SMALL CELL LUNG CANCER STAGE UNSPECIFIED
     Dosage: FROM DAY 15 TO 17 OF CYCLE
  3. RADIOTHERAPY [Suspect]
     Indication: SMALL CELL LUNG CANCER STAGE UNSPECIFIED
     Dosage: TO CHEST (1.5 GY TWICE DAILY FROM DAY 1-19) + 15 GY TO HEAD (PROPHYLACTIC)

REACTIONS (2)
  - CYTOMEGALOVIRUS COLITIS [None]
  - LUNG CANCER METASTATIC [None]
